FAERS Safety Report 6682296-9 (Version None)
Quarter: 2010Q2

REPORT INFORMATION
  Report Type: 
  Country: None (occurrence: None)
  Receive Date: 20100415
  Receipt Date: 20100413
  Transmission Date: 20101027
  Serious: Yes (Other)
  Sender: FDA-Public Use
  Company Number: US-TEVA-229874USA

PATIENT
  Sex: Female

DRUGS (2)
  1. CLARAVIS [Suspect]
     Indication: ACNE
     Route: 048
     Dates: start: 20091201, end: 20100309
  2. MONTELUKAST SODIUM [Concomitant]

REACTIONS (10)
  - ABNORMAL BEHAVIOUR [None]
  - AGGRESSION [None]
  - BLOOD TRIGLYCERIDES INCREASED [None]
  - DEPRESSION [None]
  - EMOTIONAL DISORDER [None]
  - LIVER DISORDER [None]
  - MOOD SWINGS [None]
  - PHYSICAL ASSAULT [None]
  - SUICIDAL IDEATION [None]
  - VERBAL ABUSE [None]
